FAERS Safety Report 11100127 (Version 1)
Quarter: 2015Q2

REPORT INFORMATION
  Report Type: Spontaneous
  Country: US (occurrence: None)
  Receive Date: 20150507
  Receipt Date: 20150507
  Transmission Date: 20150821
  Serious: No
  Sender: FDA-Public Use
  Company Number: None

PATIENT
  Age: 55 Year
  Sex: Female

DRUGS (1)
  1. ROSUVASTATIN [Suspect]
     Active Substance: ROSUVASTATIN
     Indication: DYSLIPIDAEMIA
     Dates: start: 20130815, end: 20130917

REACTIONS (7)
  - Hepatic steatosis [None]
  - Ascites [None]
  - Drug-induced liver injury [None]
  - Jaundice [None]
  - Myalgia [None]
  - International normalised ratio increased [None]
  - Hepatic necrosis [None]

NARRATIVE: CASE EVENT DATE: 20131230
